FAERS Safety Report 7304337-8 (Version None)
Quarter: 2011Q1

REPORT INFORMATION
  Report Type: 
  Country: None (occurrence: None)
  Receive Date: 20110221
  Receipt Date: 20110217
  Transmission Date: 20110831
  Serious: Yes (Life-Threatening, Hospitalization)
  Sender: FDA-Public Use
  Company Number: CH-ASTRAZENECA-2011SE09222

PATIENT
  Age: 89 Year
  Sex: Female

DRUGS (20)
  1. BETALOC ZOK [Suspect]
     Route: 048
     Dates: end: 20110119
  2. DIGOXIN [Interacting]
     Route: 042
     Dates: start: 20110120, end: 20110120
  3. TOREM [Concomitant]
     Route: 048
     Dates: end: 20110118
  4. NEO-MERCAZOLE TAB [Concomitant]
     Indication: HYPERTHYROIDISM
     Route: 065
     Dates: start: 20110125
  5. MULTAQ [Interacting]
     Indication: ARRHYTHMIA
     Route: 065
     Dates: start: 20110118, end: 20110128
  6. DIGOXIN [Interacting]
     Route: 042
     Dates: start: 20110123
  7. TAMOXIFEN [Concomitant]
  8. DOBUTAMINE HCL [Concomitant]
     Route: 040
     Dates: start: 20110120, end: 20110120
  9. CLEXANE [Concomitant]
     Route: 058
     Dates: start: 20110125
  10. DIGOXIN [Interacting]
     Route: 042
     Dates: start: 20110123
  11. COSOPT [Interacting]
     Indication: GLAUCOMA
     Route: 047
     Dates: end: 20110121
  12. BETALOC ZOK [Interacting]
     Route: 048
     Dates: start: 20110119
  13. COMBIGAN [Interacting]
     Indication: GLAUCOMA
     Route: 047
     Dates: end: 20110121
  14. COMBIGAN [Interacting]
     Route: 047
     Dates: start: 20110125
  15. COSOPT [Interacting]
     Route: 047
     Dates: start: 20110125
  16. COLECALCIFEROL/CALCIUM CARBONATE [Concomitant]
  17. ASPIRIN [Concomitant]
     Route: 048
     Dates: start: 20110118, end: 20110125
  18. ATROPINE [Concomitant]
     Route: 040
     Dates: start: 20110120, end: 20110120
  19. BELOC [Interacting]
     Indication: ATRIAL FIBRILLATION
     Dosage: TWO DOSES OF 5 MGS
     Route: 042
     Dates: start: 20110118, end: 20110118
  20. TIENAM [Concomitant]
     Route: 041
     Dates: start: 20110122

REACTIONS (3)
  - BRADYCARDIA [None]
  - DRUG INTERACTION [None]
  - CARDIOGENIC SHOCK [None]
